FAERS Safety Report 5755922-6 (Version None)
Quarter: 2008Q2

REPORT INFORMATION
  Report Type: 
  Country: None (occurrence: None)
  Receive Date: 20080602
  Receipt Date: 20080521
  Transmission Date: 20081010
  Serious: Yes (Hospitalization, Other)
  Sender: FDA-Public Use
  Company Number: FR-ELI_LILLY_AND_COMPANY-FR200804006966

PATIENT
  Sex: Female

DRUGS (10)
  1. CYMBALTA [Suspect]
     Indication: DEPRESSION
     Dosage: 60 MG, DAILY (1/D)
     Route: 048
     Dates: start: 20080227
  2. EXELON [Concomitant]
     Dosage: 3 MG, DAILY (1/D)
     Route: 048
  3. ALDACTONE [Concomitant]
     Dosage: 50 MG, DAILY (1/D)
     Route: 048
  4. STILNOX [Concomitant]
     Dosage: UNK, UNKNOWN
     Route: 048
  5. DIGOXIN [Concomitant]
     Dosage: 0.25 MG, DAILY (1/D)
     Route: 048
  6. DIFFU K [Concomitant]
     Dosage: UNK, UNKNOWN
     Route: 048
  7. LASILIX [Concomitant]
     Dosage: 20 MG, DAILY (1/D)
     Route: 048
  8. SPIRIVA [Concomitant]
     Dosage: UNK, UNKNOWN
     Route: 048
  9. SERETIDE [Concomitant]
     Dosage: 2 D/F, DAILY (1/D)
     Route: 055
  10. VENTOLIN [Concomitant]
     Indication: DYSPNOEA
     Dosage: UNK, AS NEEDED
     Route: 048

REACTIONS (7)
  - BRONCHOPNEUMONIA [None]
  - CEREBROVASCULAR ACCIDENT [None]
  - COMA [None]
  - DEMENTIA ALZHEIMER'S TYPE [None]
  - FUNGAL INFECTION [None]
  - LACUNAR INFARCTION [None]
  - URINARY RETENTION [None]
